FAERS Safety Report 13395344 (Version 1)
Quarter: 2017Q2

REPORT INFORMATION
  Report Type: Spontaneous
  Country: US (occurrence: US)
  Receive Date: 20170403
  Receipt Date: 20170403
  Transmission Date: 20170830
  Serious: No
  Sender: FDA-Public Use
  Company Number: US-PFIZER INC-2017140451

PATIENT
  Age: 64 Year
  Sex: Male

DRUGS (2)
  1. DIOVAN [Suspect]
     Active Substance: VALSARTAN
     Dosage: UNK
  2. QUINAPRIL. [Suspect]
     Active Substance: QUINAPRIL
     Dosage: UNK

REACTIONS (2)
  - Urticaria [Unknown]
  - Drug hypersensitivity [Unknown]
